FAERS Safety Report 23670604 (Version 1)
Quarter: 2024Q1

REPORT INFORMATION
  Report Type: Report from Study
  Country: US (occurrence: US)
  Receive Date: 20240326
  Receipt Date: 20240326
  Transmission Date: 20240409
  Serious: Yes (Hospitalization)
  Sender: FDA-Public Use
  Company Number: US-ABBVIE-5689938

PATIENT
  Age: 64 Year
  Sex: Female

DRUGS (1)
  1. RINVOQ [Suspect]
     Active Substance: UPADACITINIB
     Indication: Rheumatoid arthritis
     Route: 048

REACTIONS (4)
  - Gastrointestinal inflammation [Unknown]
  - Gastrointestinal disorder [Unknown]
  - Renal impairment [Unknown]
  - Seasonal allergy [Recovering/Resolving]

NARRATIVE: CASE EVENT DATE: 20240221
